FAERS Safety Report 24579792 (Version 1)
Quarter: 2024Q4

REPORT INFORMATION
  Report Type: Spontaneous
  Country: IE (occurrence: IE)
  Receive Date: 20241105
  Receipt Date: 20241105
  Transmission Date: 20250115
  Serious: Yes (Other)
  Sender: RANBAXY
  Company Number: IE-HPRA-2024-115567

PATIENT
  Age: 60 Year
  Sex: Female

DRUGS (4)
  1. ATORVASTATIN [Suspect]
     Active Substance: ATORVASTATIN
     Indication: Blood cholesterol increased
     Dosage: 10 MILLIGRAM
     Route: 048
     Dates: start: 2020, end: 2024
  2. CALCIUM CARBONATE\CHOLECALCIFEROL [Suspect]
     Active Substance: CALCIUM CARBONATE\CHOLECALCIFEROL
     Indication: Osteoporosis
     Dosage: 1000MG/800IU
     Route: 048
  3. LEVOTHYROXINE [Interacting]
     Active Substance: LEVOTHYROXINE
     Indication: Hypothyroidism
     Dosage: 125-150MG
     Route: 048
  4. ASPIRIN [Concomitant]
     Active Substance: ASPIRIN
     Indication: Product used for unknown indication
     Dosage: IN SMALL DOSES
     Route: 048

REACTIONS (17)
  - Circulatory collapse [Unknown]
  - Allergic reaction to excipient [Unknown]
  - Diarrhoea [Unknown]
  - Abdominal discomfort [Unknown]
  - Presyncope [Unknown]
  - Gastrointestinal pain [Unknown]
  - Drug therapeutic incompatibility [Unknown]
  - Drug interaction [Unknown]
  - Blood cholesterol increased [Recovered/Resolved]
  - Weight increased [Recovered/Resolved]
  - Sluggishness [Recovered/Resolved]
  - Asthma [Unknown]
  - Eructation [Unknown]
  - Epigastric discomfort [Unknown]
  - Gastrooesophageal reflux disease [Unknown]
  - Malabsorption [Unknown]
  - Blood calcium decreased [Unknown]
